FAERS Safety Report 5060439-0 (Version None)
Quarter: 2006Q2

REPORT INFORMATION
  Report Type: 
  Country: None (occurrence: None)
  Receive Date: 20060630
  Receipt Date: 20060321
  Transmission Date: 20061013
  Serious: Yes (Other)
  Sender: FDA-Public Use
  Company Number: A03200601574

PATIENT
  Sex: Male

DRUGS (1)
  1. AMBIEN [Suspect]
     Dosage: ORAL
     Route: 048
     Dates: start: 20060101

REACTIONS (2)
  - DIPLOPIA [None]
  - HALLUCINATION [None]
